FAERS Safety Report 5289307-6 (Version None)
Quarter: 2007Q2

REPORT INFORMATION
  Report Type: 
  Country: None (occurrence: None)
  Receive Date: 20070406
  Receipt Date: 20070402
  Transmission Date: 20071010
  Serious: Yes (Hospitalization)
  Sender: FDA-Public Use
  Company Number: US-JNJFOC-20070400821

PATIENT
  Sex: Female
  Weight: 91.63 kg

DRUGS (9)
  1. FENTANYL TRANSDERMAL SYSTEM [Suspect]
     Indication: PAIN
     Route: 062
  2. REQUIP [Concomitant]
     Route: 048
  3. SYNTHROID [Concomitant]
     Route: 048
  4. CYMBALTA [Concomitant]
     Indication: BIPOLAR DISORDER
     Route: 048
  5. POTASSIUM CHLORIDE [Concomitant]
     Indication: BIPOLAR DISORDER
     Route: 048
  6. CLONAZEPAM [Concomitant]
     Indication: ANXIETY
     Route: 048
  7. GEODON [Concomitant]
     Indication: BIPOLAR DISORDER
     Route: 048
  8. ACIPHEX [Concomitant]
     Indication: GASTROOESOPHAGEAL REFLUX DISEASE
     Route: 048
  9. SEROQUEL [Concomitant]
     Route: 048

REACTIONS (7)
  - DRUG EFFECT INCREASED [None]
  - DRUG WITHDRAWAL SYNDROME [None]
  - DYSGEUSIA [None]
  - FATIGUE [None]
  - INADEQUATE ANALGESIA [None]
  - LETHARGY [None]
  - MENTAL DISORDER [None]
